FAERS Safety Report 4560312-8 (Version None)
Quarter: 2005Q1

REPORT INFORMATION
  Report Type: 
  Country: None (occurrence: None)
  Receive Date: 20050125
  Receipt Date: 20040921
  Transmission Date: 20050727
  Serious: Yes (Disabling)
  Sender: FDA-Public Use
  Company Number: 200417305US

PATIENT
  Age: 53 Year
  Sex: Male
  Weight: 126.4 kg

DRUGS (13)
  1. KETEK [Suspect]
     Indication: ACUTE SINUSITIS
     Dosage: DOSE: 400 (2 TABLETS)
     Route: 048
     Dates: start: 20040901, end: 20040905
  2. NEURONTIN [Concomitant]
     Dosage: DOSE: UNK
  3. NEXIUM [Concomitant]
     Dosage: DOSE: UNK
  4. LIPITOR [Concomitant]
     Dosage: DOSE: UNK
  5. VIOXX [Concomitant]
     Dosage: DOSE: UNK
  6. HYDROCHLOROTHIAZIDE [Concomitant]
     Dosage: DOSE: UNK
  7. LOTREL [Concomitant]
     Dosage: DOSE: UNK
  8. TOPROL-XL [Concomitant]
     Dosage: DOSE: UNK
  9. SSRI [Concomitant]
     Dosage: DOSE: UNK
  10. CLARINEX [Concomitant]
     Dosage: DOSE: UNK
  11. SINGULAIR [Concomitant]
     Dosage: DOSE: UNK
  12. DECONGESTANTS AND ANTIALLERGICS [Concomitant]
     Dosage: DOSE: UNK
     Route: 048
  13. ASPIRIN [Concomitant]
     Dosage: DOSE: UNK
     Route: 048

REACTIONS (10)
  - DIPLOPIA [None]
  - EYE PAIN [None]
  - EYE SWELLING [None]
  - HYPERTENSION [None]
  - IMPAIRED DRIVING ABILITY [None]
  - SINUS HEADACHE [None]
  - SINUSITIS [None]
  - TEMPORAL ARTERITIS [None]
  - VISUAL DISTURBANCE [None]
  - VITH NERVE PARALYSIS [None]
